FAERS Safety Report 4802112-7 (Version None)
Quarter: 2005Q4

REPORT INFORMATION
  Report Type: 
  Country: None (occurrence: None)
  Receive Date: 20051011
  Receipt Date: 20050929
  Transmission Date: 20060501
  Serious: Yes (Life-Threatening, Hospitalization)
  Sender: FDA-Public Use
  Company Number: GXKR2005US01666

PATIENT
  Age: 56 Year
  Sex: Male

DRUGS (3)
  1. FLUOXETINE [Suspect]
     Indication: DEPRESSION
     Dosage: SEE IMAGE
  2. BUSPIRONE (NGX) (BUSPIRONE) [Suspect]
     Indication: DEPRESSION
     Dosage: 10 MG, BID
  3. OLANZAPINE (NGX) (OLANZAPINE) [Suspect]
     Indication: DEPRESSION
     Dosage: 2.5 MG AT BEDTIME

REACTIONS (20)
  - AGITATION [None]
  - BLOOD OSMOLARITY DECREASED [None]
  - BLOOD UREA DECREASED [None]
  - CONFUSIONAL STATE [None]
  - DRUG INTERACTION [None]
  - ERYTHEMA [None]
  - FLUSHING [None]
  - HYPERHIDROSIS [None]
  - HYPERREFLEXIA [None]
  - HYPERTENSION [None]
  - HYPONATRAEMIA [None]
  - INAPPROPRIATE ANTIDIURETIC HORMONE SECRETION [None]
  - MENTAL STATUS CHANGES [None]
  - MYDRIASIS [None]
  - MYOCLONUS [None]
  - NAUSEA [None]
  - NERVOUSNESS [None]
  - SEROTONIN SYNDROME [None]
  - SINUS TACHYCARDIA [None]
  - VOMITING [None]
